FAERS Safety Report 5640112-8 (Version None)
Quarter: 2008Q1

REPORT INFORMATION
  Report Type: 
  Country: None (occurrence: None)
  Receive Date: 20080227
  Receipt Date: 20080131
  Transmission Date: 20080703
  Serious: No
  Sender: FDA-Public Use
  Company Number: US-BAXTER-2008BH000981

PATIENT
  Age: 30 Year
  Sex: Male
  Weight: 56 kg

DRUGS (1)
  1. HEPARIN SODIUM [Suspect]
     Indication: RENAL FAILURE CHRONIC
     Route: 040
     Dates: start: 20080116, end: 20080116

REACTIONS (4)
  - DYSPHAGIA [None]
  - HYPERSENSITIVITY [None]
  - SWELLING FACE [None]
  - VOMITING [None]
